FAERS Safety Report 10711352 (Version 2)
Quarter: 2015Q1

REPORT INFORMATION
  Report Type: Spontaneous
  Country: IT (occurrence: IT)
  Receive Date: 20150114
  Receipt Date: 20150218
  Transmission Date: 20150721
  Serious: Yes (Other)
  Sender: FDA-Public Use
  Company Number: IT-PFIZER INC-2015012362

PATIENT
  Age: 68 Year
  Sex: Male

DRUGS (3)
  1. NOVALGIN [Suspect]
     Active Substance: METAMIZOLE SODIUM
     Indication: BRONCHITIS
     Dosage: UNK
     Dates: start: 20141229
  2. ZITHROMAX [Suspect]
     Active Substance: AZITHROMYCIN DIHYDRATE
     Indication: BRONCHITIS
     Dosage: 1 DF, DAILY
     Route: 048
     Dates: start: 20141229
  3. ROCEFIN [Suspect]
     Active Substance: CEFTRIAXONE SODIUM
     Indication: BRONCHITIS
     Dosage: 2 DF, DAILY
     Route: 030
     Dates: start: 20141229

REACTIONS (3)
  - Pruritus [Recovered/Resolved]
  - Presyncope [Recovered/Resolved]
  - Dyspnoea [Recovered/Resolved]

NARRATIVE: CASE EVENT DATE: 20141229
